FAERS Safety Report 8057997-0 (Version None)
Quarter: 2012Q1

REPORT INFORMATION
  Report Type: 
  Country: None (occurrence: None)
  Receive Date: 20120120
  Receipt Date: 20120117
  Transmission Date: 20120608
  Serious: No
  Sender: FDA-Public Use
  Company Number: US-PFIZER INC-2012014755

PATIENT
  Sex: Male

DRUGS (3)
  1. PEPCID [Suspect]
     Indication: DYSPEPSIA
     Dosage: UNK
  2. LIPITOR [Suspect]
     Dosage: UNK
     Route: 048
  3. PLAVIX [Suspect]
     Dosage: UNK

REACTIONS (1)
  - DYSPEPSIA [None]
